FAERS Safety Report 14700642 (Version 1)
Quarter: 2018Q1

REPORT INFORMATION
  Report Type: Spontaneous
  Country: US (occurrence: US)
  Receive Date: 20180330
  Receipt Date: 20180330
  Transmission Date: 20180509
  Serious: Yes (Other)
  Sender: FDA-Public Use
  Company Number: US-PFIZER INC-2018130817

PATIENT
  Age: 79 Year
  Sex: Male

DRUGS (4)
  1. SODIUM CHLORIDE. [Suspect]
     Active Substance: SODIUM CHLORIDE
     Indication: CATHETER MANAGEMENT
     Dosage: UNK
     Route: 042
  2. CEFTAZIDIME. [Suspect]
     Active Substance: CEFTAZIDIME
     Indication: CATHETER MANAGEMENT
     Dosage: UNK
     Route: 042
  3. HEPARIN SODIUM. [Suspect]
     Active Substance: HEPARIN SODIUM
     Indication: CATHETER MANAGEMENT
     Dosage: UNK
     Route: 042
  4. VANCOMYCIN HCL [Suspect]
     Active Substance: VANCOMYCIN HYDROCHLORIDE
     Indication: CATHETER MANAGEMENT
     Dosage: UNK
     Route: 042

REACTIONS (6)
  - Product preparation error [Unknown]
  - Product contamination [Unknown]
  - Device related sepsis [Recovered/Resolved]
  - Suspected transmission of an infectious agent via product [Unknown]
  - Fungal sepsis [Recovered/Resolved]
  - Poor quality drug administered [Unknown]
